FAERS Safety Report 22069547 (Version 1)
Quarter: 2023Q1

REPORT INFORMATION
  Report Type: Report from Study
  Country: US (occurrence: US)
  Receive Date: 20230307
  Receipt Date: 20230307
  Transmission Date: 20230418
  Serious: Yes (Hospitalization, Other)
  Sender: FDA-Public Use
  Company Number: US-EXELIXIS-CABO-23061297

PATIENT
  Age: 38 Year
  Sex: Male

DRUGS (18)
  1. CABOMETYX [Suspect]
     Active Substance: CABOZANTINIB S-MALATE
     Indication: Renal cell carcinoma
     Dosage: 20 MG
     Dates: start: 20230202, end: 20230218
  2. NIVOLUMAB [Suspect]
     Active Substance: NIVOLUMAB
     Indication: Renal cell carcinoma
  3. TYLENOL [Concomitant]
     Active Substance: ACETAMINOPHEN
  4. DEXAMETHASONE [Concomitant]
     Active Substance: DEXAMETHASONE
  5. FAMOTIDINE [Concomitant]
     Active Substance: FAMOTIDINE
  6. FERROUS SULFATE [Concomitant]
     Active Substance: FERROUS SULFATE
  7. GABAPENTIN [Concomitant]
     Active Substance: GABAPENTIN
  8. BASAGLAR [Concomitant]
     Active Substance: INSULIN GLARGINE
  9. LACTULOSE [Concomitant]
     Active Substance: LACTULOSE
  10. METFORMIN [Concomitant]
     Active Substance: METFORMIN HYDROCHLORIDE
  11. MORPHINE [Concomitant]
     Active Substance: MORPHINE
  12. PERCOCET [Concomitant]
     Active Substance: ACETAMINOPHEN\OXYCODONE HYDROCHLORIDE
  13. PROTONIX [Concomitant]
     Active Substance: PANTOPRAZOLE SODIUM
  14. MIRALAX [Concomitant]
     Active Substance: POLYETHYLENE GLYCOL 3350
  15. SENNA [Concomitant]
     Active Substance: SENNA LEAF\SENNOSIDES\SENNOSIDES A AND B
  16. SUCRALFATE [Concomitant]
     Active Substance: SUCRALFATE
  17. TIZANIDINE [Concomitant]
     Active Substance: TIZANIDINE
  18. INSULIN LISPRO [Concomitant]
     Active Substance: INSULIN LISPRO

REACTIONS (4)
  - Pain [Unknown]
  - Muscular weakness [Unknown]
  - Platelet count decreased [Unknown]
  - Constipation [Recovered/Resolved]

NARRATIVE: CASE EVENT DATE: 20230201
